FAERS Safety Report 14453100 (Version 1)
Quarter: 2018Q1

REPORT INFORMATION
  Report Type: Spontaneous
  Country: JP (occurrence: JP)
  Receive Date: 20180129
  Receipt Date: 20180129
  Transmission Date: 20180509
  Serious: Yes (Death, Hospitalization, Other)
  Sender: FDA-Public Use
  Company Number: JP-BAYER-2017-221516

PATIENT
  Age: 85 Year
  Sex: Female
  Weight: 63.3 kg

DRUGS (9)
  1. TRAMAL [Suspect]
     Active Substance: TRAMADOL
     Indication: PAIN
     Dosage: DAILY DOSE 100 MG
     Route: 048
     Dates: start: 20171013, end: 20171024
  2. NEXAVAR [Suspect]
     Active Substance: SORAFENIB
     Indication: METASTASES TO BONE
  3. CELECOXIB. [Concomitant]
     Active Substance: CELECOXIB
     Indication: PAIN
     Dosage: DAILY DOSE 200 MG
     Route: 048
     Dates: start: 20170926, end: 20171024
  4. DAIKENTYUTO [Concomitant]
     Active Substance: HERBALS
     Indication: ABDOMINAL DISTENSION
     Dosage: DAILY DOSE 7.5 MG
     Route: 048
     Dates: end: 20171024
  5. YODEL [Concomitant]
     Active Substance: SENNA LEAF
     Indication: CONSTIPATION
     Dosage: DAILY DOSE 160 MG
     Route: 048
  6. NEXAVAR [Suspect]
     Active Substance: SORAFENIB
     Indication: RENAL CELL CARCINOMA
     Dosage: 400MG DAILY
     Route: 048
     Dates: start: 20170926, end: 20171024
  7. REBAMIPIDE [Concomitant]
     Active Substance: REBAMIPIDE
     Indication: GASTRITIS
     Dosage: DAILY DOSE 200 MG
     Route: 048
     Dates: start: 20170926, end: 20171024
  8. HOCHUUEKKITOU [Concomitant]
     Active Substance: HERBALS
     Indication: ASTHENIA
     Dosage: DAILY DOSE 5 G
     Route: 048
     Dates: end: 20171024
  9. HIRUDOID [Concomitant]
     Active Substance: GLYCOSAMINOGLYCANS
     Indication: DRUG TOXICITY PROPHYLAXIS
     Dosage: UNK
     Route: 003
     Dates: start: 20170926, end: 20171024

REACTIONS (5)
  - Jaundice [Fatal]
  - Malaise [Fatal]
  - Hepatic function abnormal [Fatal]
  - Melaena [None]
  - Hepatic failure [Fatal]

NARRATIVE: CASE EVENT DATE: 20171024
